FAERS Safety Report 5498614-3 (Version None)
Quarter: 2007Q4

REPORT INFORMATION
  Report Type: 
  Country: None (occurrence: None)
  Receive Date: 20071026
  Receipt Date: 20071018
  Transmission Date: 20080405
  Serious: Yes (Other)
  Sender: FDA-Public Use
  Company Number: PHEH2007US13769

PATIENT
  Sex: Female

DRUGS (3)
  1. HYDROCHLOROTHIAZIDE [Suspect]
     Indication: HYPERTENSION
  2. AMLODIPINE BESYLATE [Suspect]
     Indication: HYPERTENSION
  3. ATENOLOL [Suspect]
     Indication: HYPERTENSION

REACTIONS (2)
  - MALAISE [None]
  - SEPSIS [None]
